FAERS Safety Report 22662010 (Version 1)
Quarter: 2023Q2

REPORT INFORMATION
  Report Type: Spontaneous
  Country: FR (occurrence: None)
  Receive Date: 20230630
  Receipt Date: 20230630
  Transmission Date: 20230721
  Serious: Yes (Life-Threatening, Hospitalization)
  Sender: FDA-Public Use
  Company Number: 2023A149201

PATIENT
  Age: 83 Year
  Sex: Female
  Weight: 43 kg

DRUGS (8)
  1. DURVALUMAB [Suspect]
     Active Substance: DURVALUMAB
     Indication: Cholangiocarcinoma
     Dosage: 1500.0MG EVERY CYCLE
     Route: 042
     Dates: start: 20230504, end: 20230504
  2. DURVALUMAB [Suspect]
     Active Substance: DURVALUMAB
     Indication: Cholangiocarcinoma
     Dosage: 1500.0MG EVERY CYCLE
     Route: 042
     Dates: start: 20230513, end: 20230513
  3. CISPLATIN [Suspect]
     Active Substance: CISPLATIN
     Indication: Cholangiocarcinoma
     Dosage: 28.0MG EVERY CYCLE
     Route: 042
     Dates: start: 20230413, end: 20230413
  4. CISPLATIN [Suspect]
     Active Substance: CISPLATIN
     Indication: Cholangiocarcinoma
     Dosage: 28.0MG EVERY CYCLE
     Route: 042
     Dates: start: 20230420, end: 20230420
  5. CISPLATIN [Suspect]
     Active Substance: CISPLATIN
     Indication: Cholangiocarcinoma
     Dosage: 28.0MG EVERY CYCLE
     Route: 042
     Dates: start: 20230504, end: 20230504
  6. GEMCITABINE [Suspect]
     Active Substance: GEMCITABINE
     Indication: Cholangiocarcinoma
     Dosage: 1128.0MG EVERY CYCLE
     Route: 042
     Dates: start: 20230420, end: 20230420
  7. GEMCITABINE [Suspect]
     Active Substance: GEMCITABINE
     Indication: Cholangiocarcinoma
     Dosage: 1128.0MG EVERY CYCLE
     Route: 042
     Dates: start: 20230413, end: 20230413
  8. GEMCITABINE [Suspect]
     Active Substance: GEMCITABINE
     Indication: Cholangiocarcinoma
     Dosage: 1128.0MG EVERY CYCLE
     Route: 042
     Dates: start: 20230504, end: 20230504

REACTIONS (1)
  - Peritonitis [Recovered/Resolved]

NARRATIVE: CASE EVENT DATE: 20230506
